FAERS Safety Report 14313978 (Version 1)
Quarter: 2017Q4

REPORT INFORMATION
  Report Type: Report from Study
  Country: GB (occurrence: GB)
  Receive Date: 20171221
  Receipt Date: 20171221
  Transmission Date: 20180321
  Serious: Yes (Other)
  Sender: FDA-Public Use
  Company Number: GB-NAPPMUNDI-GBR-2017-0051756

PATIENT
  Age: 49 Year
  Sex: Female

DRUGS (1)
  1. MORPHINE SULFATE. [Suspect]
     Active Substance: MORPHINE SULFATE
     Indication: ANAESTHESIA
     Dosage: UNKNOWN
     Route: 042

REACTIONS (4)
  - Bronchospasm [Unknown]
  - Hypotension [Unknown]
  - Angioedema [Unknown]
  - Drug hypersensitivity [Unknown]
